FAERS Safety Report 4508003-3 (Version None)
Quarter: 2004Q4

REPORT INFORMATION
  Report Type: 
  Country: None (occurrence: None)
  Receive Date: 20041122
  Receipt Date: 20041122
  Transmission Date: 20050328
  Serious: No
  Sender: FDA-Public Use
  Company Number: None

PATIENT
  Age: 54 Year
  Sex: Male
  Weight: 121 kg

DRUGS (2)
  1. OMEPRAZOLE [Suspect]
     Indication: ABDOMINAL PAIN
     Dosage: 20 MG PO QD
     Route: 048
     Dates: start: 20040915
  2. OMEPRAZOLE [Suspect]
     Indication: GASTRIC DISORDER
     Dosage: 20 MG PO QD
     Route: 048
     Dates: start: 20040915

REACTIONS (1)
  - NAUSEA [None]
